FAERS Safety Report 5375434-1 (Version None)
Quarter: 2007Q2

REPORT INFORMATION
  Report Type: 
  Country: None (occurrence: None)
  Receive Date: 20070629
  Receipt Date: 20070626
  Transmission Date: 20071010
  Serious: Yes (Other)
  Sender: FDA-Public Use
  Company Number: GB-BOEHRINGER INGELHEIM PHARMACEUTICALS, INC.-2007-UK-02097UK

PATIENT
  Age: 59 Year
  Sex: Female

DRUGS (4)
  1. CATAPRES [Suspect]
     Route: 048
     Dates: start: 20070525
  2. VARENICLINE [Suspect]
     Route: 048
     Dates: start: 20070525
  3. NICOTINE [Suspect]
  4. LEVOTHYROXINE SODIUM [Concomitant]
     Route: 048

REACTIONS (2)
  - NIGHTMARE [None]
  - SLEEP DISORDER [None]
